FAERS Safety Report 9435449 (Version 2)
Quarter: 2013Q4

REPORT INFORMATION
  Report Type: Spontaneous
  Country: HU (occurrence: HU)
  Receive Date: 20130801
  Receipt Date: 20131004
  Transmission Date: 20140711
  Serious: Yes (Hospitalization)
  Sender: FDA-Public Use
  Company Number: HU-GLAXOSMITHKLINE-B0912308A

PATIENT
  Age: 9 Month
  Sex: Male
  Weight: 9 kg

DRUGS (4)
  1. FLIXOTIDE [Suspect]
     Indication: DYSPNOEA
     Dosage: 1500MCG PER DAY
     Route: 055
     Dates: start: 20130719, end: 20130721
  2. VENTOLIN [Concomitant]
     Indication: DYSPNOEA
     Dosage: 6PUFF PER DAY
     Route: 065
     Dates: start: 20130719, end: 20130719
  3. ADRENALINE [Concomitant]
     Route: 055
  4. SALINE [Concomitant]
     Route: 055

REACTIONS (2)
  - Overdose [Recovered/Resolved]
  - Drug administration error [Recovered/Resolved]
